FAERS Safety Report 7775825-5 (Version None)
Quarter: 2011Q3

REPORT INFORMATION
  Report Type: 
  Country: None (occurrence: None)
  Receive Date: 20110923
  Receipt Date: 20110913
  Transmission Date: 20111222
  Serious: Yes (Hospitalization, Other)
  Sender: FDA-Public Use
  Company Number: PHHY2009BR07926

PATIENT
  Sex: Female
  Weight: 47 kg

DRUGS (4)
  1. EXFORGE [Suspect]
     Dosage: 1 DF, QD
     Route: 048
     Dates: start: 20090301
  2. LEXOTAN [Concomitant]
     Indication: SLEEP DISORDER
     Dosage: 3 MG, HALF TABLET A DAY
     Route: 048
     Dates: start: 19990101
  3. EXFORGE [Suspect]
     Indication: HYPERTENSION
     Dosage: 1 DF, QD
     Route: 048
     Dates: start: 20060101
  4. CALCIUM CARBONATE [Concomitant]
     Indication: THERAPY RESPONDER
     Dosage: 600 MG, 1 TABLET/DAY
     Route: 048
     Dates: start: 20040101

REACTIONS (7)
  - NAUSEA [None]
  - VISUAL IMPAIRMENT [None]
  - OEDEMA PERIPHERAL [None]
  - BLOOD PRESSURE INCREASED [None]
  - INFARCTION [None]
  - WEIGHT DECREASED [None]
  - DIZZINESS [None]
